FAERS Safety Report 4613700-5 (Version None)
Quarter: 2005Q1

REPORT INFORMATION
  Report Type: 
  Country: None (occurrence: None)
  Receive Date: 20050318
  Receipt Date: 20050318
  Transmission Date: 20050727
  Serious: Yes (Other)
  Sender: FDA-Public Use
  Company Number: None

PATIENT
  Age: 72 Year
  Sex: Male
  Weight: 79.8331 kg

DRUGS (1)
  1. VALDECOXIB [Suspect]
     Indication: PAIN
     Dosage: 10 MG QD

REACTIONS (1)
  - DIARRHOEA [None]
